FAERS Safety Report 15233461 (Version 1)
Quarter: 2018Q3

REPORT INFORMATION
  Report Type: Report from Study
  Country: IT (occurrence: IT)
  Receive Date: 20180802
  Receipt Date: 20180802
  Transmission Date: 20181010
  Serious: Yes (Hospitalization)
  Sender: FDA-Public Use
  Company Number: IT-MYLANLABS-2018M1056374

PATIENT
  Age: 26 Year
  Sex: Male

DRUGS (2)
  1. KETOPROFEN. [Suspect]
     Active Substance: KETOPROFEN
     Indication: INFLUENZA
  2. ASPIRINA [Suspect]
     Active Substance: ASPIRIN
     Indication: INFLUENZA
     Dosage: 2 G, QD
     Route: 048
     Dates: start: 20180410, end: 20180414

REACTIONS (3)
  - Medication error [Not Recovered/Not Resolved]
  - Haematemesis [Not Recovered/Not Resolved]
  - Retching [Not Recovered/Not Resolved]

NARRATIVE: CASE EVENT DATE: 20180413
